FAERS Safety Report 10397165 (Version 1)
Quarter: 2014Q3

REPORT INFORMATION
  Report Type: Spontaneous
  Country: US (occurrence: None)
  Receive Date: 20140819
  Receipt Date: 20140819
  Transmission Date: 20150326
  Serious: Yes (Hospitalization)
  Sender: FDA-Public Use
  Company Number: None

PATIENT
  Age: 33 Year
  Sex: Female
  Weight: 49.9 kg

DRUGS (1)
  1. CEPHALEXIN 500MG [Suspect]
     Active Substance: CEPHALEXIN
     Indication: MASTITIS
     Dosage: 1 PILL
     Route: 048
     Dates: start: 20140815, end: 20140818

REACTIONS (2)
  - Haematemesis [None]
  - Nausea [None]

NARRATIVE: CASE EVENT DATE: 20140818
